FAERS Safety Report 18375703 (Version 2)
Quarter: 2020Q4

REPORT INFORMATION
  Report Type: Spontaneous
  Country: US (occurrence: US)
  Receive Date: 20201013
  Receipt Date: 20201015
  Transmission Date: 20210114
  Serious: Yes (Death)
  Sender: FDA-Public Use
  Company Number: NVSC2020US274863

PATIENT
  Sex: Male

DRUGS (1)
  1. GILENYA [Suspect]
     Active Substance: FINGOLIMOD HYDROCHLORIDE
     Indication: MULTIPLE SCLEROSIS RELAPSE
     Dosage: UNK, BID
     Route: 048

REACTIONS (5)
  - Dyspnoea [Fatal]
  - Organ failure [Fatal]
  - Wheezing [Fatal]
  - Cardiac failure congestive [Fatal]
  - Lymphocyte count decreased [Fatal]
